FAERS Safety Report 11196662 (Version 1)
Quarter: 2015Q2

REPORT INFORMATION
  Report Type: Spontaneous
  Country: US (occurrence: None)
  Receive Date: 20150616
  Receipt Date: 20150616
  Transmission Date: 20150821
  Serious: Yes (Other)
  Sender: FDA-Public Use
  Company Number: None

PATIENT
  Age: 43 Year
  Sex: Male
  Weight: 108.86 kg

DRUGS (10)
  1. NAPROXEN. [Concomitant]
     Active Substance: NAPROXEN
  2. ATORVASTATIN [Concomitant]
     Active Substance: ATORVASTATIN
  3. OMEPRAZOLE. [Concomitant]
     Active Substance: OMEPRAZOLE
  4. NAPROXEN 500MG [Suspect]
     Active Substance: NAPROXEN
     Indication: PAIN
     Dosage: 2 PILLS
     Route: 048
     Dates: start: 20050801, end: 20150615
  5. ALLOPURINOL. [Concomitant]
     Active Substance: ALLOPURINOL
  6. METFORMIN [Concomitant]
     Active Substance: METFORMIN HYDROCHLORIDE
  7. NAPROXEN 500MG [Suspect]
     Active Substance: NAPROXEN
     Indication: JOINT SWELLING
     Dosage: 2 PILLS
     Route: 048
     Dates: start: 20050801, end: 20150615
  8. ATENOLOL. [Concomitant]
     Active Substance: ATENOLOL
  9. FENORFIBRIC [Concomitant]
  10. HYDROCHLOROTHIAZIDE. [Concomitant]
     Active Substance: HYDROCHLOROTHIAZIDE

REACTIONS (4)
  - Toothache [None]
  - Tooth loss [None]
  - Tooth extraction [None]
  - Loose tooth [None]
